FAERS Safety Report 20912957 (Version 1)
Quarter: 2022Q2

REPORT INFORMATION
  Report Type: Spontaneous
  Country: FR (occurrence: FR)
  Receive Date: 20220603
  Receipt Date: 20220603
  Transmission Date: 20220720
  Serious: Yes (Life-Threatening, Hospitalization)
  Sender: FDA-Public Use
  Company Number: None

PATIENT
  Age: 51 Year
  Sex: Male
  Weight: 79 kg

DRUGS (6)
  1. RINVOQ [Suspect]
     Active Substance: UPADACITINIB
     Indication: Psoriatic arthropathy
     Route: 048
     Dates: start: 20210701, end: 20220506
  2. LEVOTHYROXINE [Concomitant]
     Active Substance: LEVOTHYROXINE
     Indication: Thyroiditis
     Dosage: SCORED TABLET
     Route: 048
  3. FINASTERIDE [Concomitant]
     Active Substance: FINASTERIDE
     Indication: Benign prostatic hyperplasia
     Dosage: 5 MG IN THE MORNING
     Route: 048
  4. ESOMEPRAZOLE [Concomitant]
     Active Substance: ESOMEPRAZOLE
     Indication: Prophylaxis against gastrointestinal ulcer
     Dosage: 20 MG IN THE EVENING
     Route: 048
  5. TRAMADOL HYDROCHLORIDE [Concomitant]
     Active Substance: TRAMADOL HYDROCHLORIDE
     Indication: Psoriatic arthropathy
     Dosage: 100 MG LP IN THE MORNING AND IN THE EVENING
     Route: 048
  6. ALFUZOSIN [Concomitant]
     Active Substance: ALFUZOSIN
     Indication: Benign prostatic hyperplasia
     Dosage: 10 MG IN THE EVENING
     Route: 048

REACTIONS (1)
  - Myocardial infarction [Recovered/Resolved]

NARRATIVE: CASE EVENT DATE: 20220428
